FAERS Safety Report 9915813 (Version 1)
Quarter: 2014Q1

REPORT INFORMATION
  Report Type: Spontaneous
  Country: US (occurrence: None)
  Receive Date: 20140219
  Receipt Date: 20140219
  Transmission Date: 20141002
  Serious: Yes (Disabling)
  Sender: FDA-Public Use
  Company Number: None

PATIENT
  Age: 74 Year
  Sex: Female
  Weight: 68.04 kg

DRUGS (17)
  1. CLARITHROMYCIN [Suspect]
     Indication: BRONCHITIS
     Route: 048
     Dates: start: 20130607, end: 20130613
  2. CLARITHROMYCIN [Suspect]
     Indication: PNEUMONIA
     Route: 048
     Dates: start: 20130607, end: 20130613
  3. CLARITHROMYCIN [Suspect]
     Route: 048
     Dates: start: 20130607, end: 20130613
  4. PHILLIPS COLON HEALTH PROBIOTIC [Concomitant]
  5. ACIDOPHILUS [Concomitant]
  6. ALIGN [Concomitant]
  7. ATCAND [Concomitant]
  8. BYSTOLIC [Concomitant]
  9. LIPITOR [Concomitant]
  10. BENTYL [Concomitant]
  11. CREON12 [Concomitant]
  12. LOW DOSE ASPIRIN [Concomitant]
  13. ORUKISEC [Concomitant]
  14. COQ12 [Concomitant]
  15. CALCIUM [Concomitant]
  16. VITD [Concomitant]
  17. CENTRUM SILVER [Concomitant]

REACTIONS (7)
  - Diarrhoea [None]
  - Dysgeusia [None]
  - Pruritus [None]
  - Malaise [None]
  - Thirst [None]
  - Hunger [None]
  - Blood pressure increased [None]
